FAERS Safety Report 21673560 (Version 1)
Quarter: 2022Q4

REPORT INFORMATION
  Report Type: Spontaneous
  Country: CO (occurrence: CO)
  Receive Date: 20221202
  Receipt Date: 20221202
  Transmission Date: 20230112
  Serious: Yes (Other)
  Sender: FDA-Public Use
  Company Number: CO-009507513-2211COL009855

PATIENT
  Sex: Male

DRUGS (2)
  1. PEMBROLIZUMAB [Suspect]
     Active Substance: PEMBROLIZUMAB
     Dosage: UNK
     Dates: start: 202208
  2. INLYTA [Suspect]
     Active Substance: AXITINIB
     Dosage: UNK
     Route: 048
     Dates: start: 202208

REACTIONS (5)
  - Squamous cell carcinoma of the oral cavity [Unknown]
  - Penile squamous cell carcinoma [Unknown]
  - Genital lesion [Unknown]
  - Tongue disorder [Unknown]
  - Skin lesion [Unknown]

NARRATIVE: CASE EVENT DATE: 20220101
